FAERS Safety Report 12216242 (Version 4)
Quarter: 2021Q1

REPORT INFORMATION
  Report Type: Spontaneous
  Country: US (occurrence: US)
  Receive Date: 20160329
  Receipt Date: 20210330
  Transmission Date: 20210419
  Serious: Yes (Hospitalization, Other)
  Sender: FDA-Public Use
  Company Number: US-AUROBINDO-AUR-APL-2016-03803

PATIENT
  Age: 19 Year
  Sex: Female

DRUGS (1)
  1. LAMOTRIGINE. [Suspect]
     Active Substance: LAMOTRIGINE
     Indication: BIPOLAR DISORDER
     Dosage: UNK
     Route: 065

REACTIONS (12)
  - Transaminases increased [Recovering/Resolving]
  - Eosinophilia [Unknown]
  - Tubulointerstitial nephritis and uveitis syndrome [Recovering/Resolving]
  - Rash [Recovered/Resolved]
  - Acute kidney injury [Unknown]
  - Leukocytosis [Unknown]
  - Uveitis [Recovered/Resolved]
  - Visual acuity reduced [Recovered/Resolved]
  - Photosensitivity reaction [Recovered/Resolved]
  - Retinal pigment epitheliopathy [Recovered/Resolved]
  - Visual field defect [Recovered/Resolved]
  - Arthralgia [Recovered/Resolved]
